FAERS Safety Report 7255491-8 (Version None)
Quarter: 2011Q1

REPORT INFORMATION
  Report Type: 
  Country: None (occurrence: None)
  Receive Date: 20110129
  Receipt Date: 20100330
  Transmission Date: 20110831
  Serious: No
  Sender: FDA-Public Use
  Company Number: US-ABBOTT-10P-163-0635414-00

PATIENT
  Sex: Female

DRUGS (3)
  1. HUMIRA [Suspect]
     Indication: COLITIS ULCERATIVE
     Route: 058
     Dates: start: 20080101, end: 20091201
  2. ASACOL [Concomitant]
     Indication: COLITIS ULCERATIVE
     Route: 048
  3. ENTOCORT EC [Concomitant]
     Indication: COLITIS ULCERATIVE

REACTIONS (1)
  - COLITIS ULCERATIVE [None]
